FAERS Safety Report 4498018-6 (Version None)
Quarter: 2004Q4

REPORT INFORMATION
  Report Type: 
  Country: None (occurrence: None)
  Receive Date: 20041109
  Receipt Date: 20041109
  Transmission Date: 20050328
  Serious: Yes (Other)
  Sender: FDA-Public Use
  Company Number: None

PATIENT
  Sex: Female
  Weight: 104.3273 kg

DRUGS (3)
  1. ESTRADIOL [Suspect]
     Indication: HORMONE REPLACEMENT THERAPY
     Route: 062
     Dates: start: 20040102, end: 20020403
  2. HALDOL [Concomitant]
  3. IBUPROFEN [Concomitant]

REACTIONS (2)
  - APPLICATION SITE DERMATITIS [None]
  - PHARMACEUTICAL PRODUCT COMPLAINT [None]
